FAERS Safety Report 4795688-X (Version None)
Quarter: 2005Q3

REPORT INFORMATION
  Report Type: 
  Country: None (occurrence: None)
  Receive Date: 20050916
  Receipt Date: 20050614
  Transmission Date: 20060218
  Serious: Yes (Hospitalization)
  Sender: FDA-Public Use
  Company Number: US-JNJFOC-20050604300

PATIENT
  Age: 7 Year
  Sex: Male

DRUGS (4)
  1. TOPAMAX [Suspect]
     Indication: EPILEPSY
     Dosage: 45 MG, 2 IN 1 DAY, ORAL; 90 MG, 1 IN 1 DAY, ORAL
     Route: 048
     Dates: start: 20010401, end: 20050519
  2. TOPAMAX [Suspect]
     Indication: EPILEPSY
     Dosage: 45 MG, 2 IN 1 DAY, ORAL; 90 MG, 1 IN 1 DAY, ORAL
     Route: 048
     Dates: start: 20050401, end: 20050519
  3. TOPAMAX [Suspect]
     Indication: EPILEPSY
     Dosage: 50 MG, 2 IN 1 DAY, ORAL;  100 MG, 1 IN 1 DAY, ORAL
     Route: 048
     Dates: start: 20050519
  4. TOPAMAX [Suspect]
     Indication: EPILEPSY
     Dosage: 50 MG, 2 IN 1 DAY, ORAL;  100 MG, 1 IN 1 DAY, ORAL
     Route: 048
     Dates: start: 20050519

REACTIONS (2)
  - CONVULSION [None]
  - FREQUENT BOWEL MOVEMENTS [None]
